FAERS Safety Report 25199131 (Version 1)
Quarter: 2025Q2

REPORT INFORMATION
  Report Type: Spontaneous
  Country: US (occurrence: US)
  Receive Date: 20250415
  Receipt Date: 20250415
  Transmission Date: 20250717
  Serious: Yes (Hospitalization)
  Sender: SANOFI AVENTIS
  Company Number: US-SA-2025SA107541

PATIENT
  Sex: Male
  Weight: 113.38 kg

DRUGS (20)
  1. DUPIXENT [Suspect]
     Active Substance: DUPILUMAB
     Indication: Dermatitis atopic
     Dosage: 300 MG, QOW
     Route: 058
     Dates: start: 20221221
  2. DUPIXENT [Suspect]
     Active Substance: DUPILUMAB
     Indication: Dermatitis
  3. LOSARTAN [Concomitant]
     Active Substance: LOSARTAN
  4. FARXIGA [Concomitant]
     Active Substance: DAPAGLIFLOZIN PROPANEDIOL
  5. FLUOCINOLONE ACETONIDE [Concomitant]
     Active Substance: FLUOCINOLONE ACETONIDE
  6. CLOBETASOL PROPIONATE [Concomitant]
     Active Substance: CLOBETASOL PROPIONATE
  7. METHOTREXATE [Concomitant]
     Active Substance: METHOTREXATE
  8. JANUVIA [Concomitant]
     Active Substance: SITAGLIPTIN PHOSPHATE
  9. VASCEPA [Concomitant]
     Active Substance: ICOSAPENT ETHYL
  10. ZYRTEC [Concomitant]
     Active Substance: CETIRIZINE HYDROCHLORIDE
  11. BENADRYL [Concomitant]
     Active Substance: DIPHENHYDRAMINE HYDROCHLORIDE
  12. ASPIRIN [Concomitant]
     Active Substance: ASPIRIN
  13. VITAMIN D3 [Concomitant]
     Active Substance: CHOLECALCIFEROL
  14. LASIX [Concomitant]
     Active Substance: FUROSEMIDE
  15. ULORIC [Concomitant]
     Active Substance: FEBUXOSTAT
  16. COENZYME Q10 [Concomitant]
     Active Substance: DIETARY SUPPLEMENT\UBIDECARENONE
  17. VITAMINS NOS [Concomitant]
     Active Substance: VITAMINS
  18. ROSUVASTATIN CALCIUM [Concomitant]
     Active Substance: ROSUVASTATIN CALCIUM
  19. NOVOLOG [Concomitant]
     Active Substance: INSULIN ASPART
  20. LANTUS SOLOSTAR [Concomitant]
     Active Substance: INSULIN GLARGINE

REACTIONS (1)
  - Influenza [Unknown]
